FAERS Safety Report 4333706-3 (Version None)
Quarter: 2004Q2

REPORT INFORMATION
  Report Type: 
  Country: None (occurrence: None)
  Receive Date: 20040402
  Receipt Date: 20040323
  Transmission Date: 20050107
  Serious: Yes (Hospitalization)
  Sender: FDA-Public Use
  Company Number: CZ-JNJFOC-20040305063

PATIENT
  Age: 35 Year
  Sex: Female

DRUGS (7)
  1. REMICADE [Suspect]
     Indication: RHEUMATOID ARTHRITIS
     Dosage: 3 MG/KG, INTRAVENOUS
     Route: 042
     Dates: start: 20031015, end: 20040318
  2. METHOTREXATE [Concomitant]
  3. PREDNISONE [Concomitant]
  4. SULFASALAZIN (SULFASALAZINE) [Concomitant]
  5. VIOXX [Concomitant]
  6. CALCIUM (CALCIUM) [Concomitant]
  7. ACIDUM FOLLICUM (FOLIC ACID) [Concomitant]

REACTIONS (1)
  - HYPERSENSITIVITY [None]
